FAERS Safety Report 5750594-9 (Version None)
Quarter: 2008Q2

REPORT INFORMATION
  Report Type: 
  Country: None (occurrence: None)
  Receive Date: 20080523
  Receipt Date: 20080523
  Transmission Date: 20081010
  Serious: Yes (Hospitalization)
  Sender: FDA-Public Use
  Company Number: None

PATIENT
  Sex: Female
  Weight: 77.1 kg

DRUGS (19)
  1. SORAFENIB 200 MG [Suspect]
     Indication: MALIGNANT MELANOMA
     Dosage: 200 MG, PO, BID
     Route: 048
  2. MOTRIN [Concomitant]
  3. TYLENOL [Concomitant]
  4. RELPAX [Concomitant]
  5. M.V.I. [Concomitant]
  6. VALTREX [Concomitant]
  7. ATENOLOL [Concomitant]
  8. ORTHOCYCLINE [Concomitant]
  9. KEFLEX [Concomitant]
  10. LOVENOX [Concomitant]
  11. PROTONIX [Concomitant]
  12. COLACE [Concomitant]
  13. ZOFRAN [Concomitant]
  14. OXYCODONE HCL [Concomitant]
  15. POTASSIUM CHLORIDE [Concomitant]
  16. CEPHALEXIN [Concomitant]
  17. D5LR [Concomitant]
  18. NARCAN [Concomitant]
  19. FENTANYL [Concomitant]

REACTIONS (2)
  - ERYTHEMA [None]
  - PAIN IN EXTREMITY [None]
